FAERS Safety Report 9014766 (Version 2)
Quarter: 2013Q2

REPORT INFORMATION
  Report Type: Report from Study
  Country: JP (occurrence: JP)
  Receive Date: 20130115
  Receipt Date: 20130411
  Transmission Date: 20140414
  Serious: Yes (Hospitalization)
  Sender: FDA-Public Use
  Company Number: JP-009507513-1301JPN004627

PATIENT
  Age: 62 Year
  Sex: Female
  Weight: 48 kg

DRUGS (11)
  1. PEGINTRON [Suspect]
     Indication: CHRONIC HEPATITIS C
     Dosage: 1.6 MICROGRAM PER KILOGRAM, QW
     Route: 058
     Dates: start: 20120924, end: 20121021
  2. PEGINTRON [Suspect]
     Dosage: 1.46 MICROGRAM PER KILOGRAM, QW
     Route: 058
     Dates: start: 20121022, end: 20121119
  3. REBETOL [Suspect]
     Indication: CHRONIC HEPATITIS C
     Dosage: 600 MG, QD
     Route: 048
     Dates: start: 20120924, end: 20121008
  4. REBETOL [Suspect]
     Dosage: 400 MG, QD
     Route: 048
     Dates: start: 20121009, end: 20121015
  5. REBETOL [Suspect]
     Dosage: 600 MG, QD
     Route: 048
     Dates: start: 20121016, end: 20121028
  6. REBETOL [Suspect]
     Dosage: 400 MG, QD
     Route: 048
     Dates: start: 20121029, end: 20121111
  7. REBETOL [Suspect]
     Dosage: 200 MG, QD
     Route: 048
     Dates: start: 20121112, end: 20121124
  8. TELAVIC [Suspect]
     Indication: CHRONIC HEPATITIS C
     Dosage: 1500 MG, QD
     Route: 048
     Dates: start: 20120924, end: 20121124
  9. RINDERON (BETAMETHASONE) [Suspect]
     Indication: ADVERSE EVENT
     Dosage: 3 MG, QD
     Route: 048
     Dates: start: 20121127
  10. RINDERON (BETAMETHASONE) [Suspect]
     Dosage: 2 MG, QD
     Route: 048
     Dates: end: 20121202
  11. ALLELOCK [Concomitant]
     Indication: PROPHYLAXIS
     Dosage: 5 MG, QD
     Route: 048
     Dates: start: 20121029, end: 20121120

REACTIONS (9)
  - Anaemia [Not Recovered/Not Resolved]
  - Erythema multiforme [Recovering/Resolving]
  - Pneumonia [Recovering/Resolving]
  - Nausea [None]
  - Pruritus [None]
  - Face oedema [None]
  - Pyrexia [None]
  - Oral candidiasis [None]
  - Glossitis [None]
